FAERS Safety Report 20438552 (Version 1)
Quarter: 2022Q1

REPORT INFORMATION
  Report Type: Spontaneous
  Country: US (occurrence: None)
  Receive Date: 20220207
  Receipt Date: 20220207
  Transmission Date: 20220423
  Serious: Yes (Hospitalization)
  Sender: FDA-Public Use
  Company Number: US-FRESENIUS KABI-FK202201269

PATIENT
  Age: 33 Year
  Sex: Male

DRUGS (16)
  1. MESNA [Suspect]
     Active Substance: MESNA
     Indication: Product used for unknown indication
     Dosage: 300 MG/M2 CYCLIC (REGIMEN A: 300MG/M2 IV DAILY OVER 24 HOURS FOR 3 DAYS ON DAYS 1-3)
     Route: 042
  2. INOTUZUMAB OZOGAMICIN [Suspect]
     Active Substance: INOTUZUMAB OZOGAMICIN
     Indication: Acute lymphocytic leukaemia
     Dosage: 0.3 MG/M2 CYCLIC (REGIMEN A: IV OVER 1 HOUR ON DAYS 2 AND 8 OF CYCLES 1 AND 3 (APPROXIMATE))
     Route: 042
     Dates: start: 20210430
  3. INOTUZUMAB OZOGAMICIN [Suspect]
     Active Substance: INOTUZUMAB OZOGAMICIN
     Dosage: 0.3 MG/M2 CYCLIC (REGIMEN B: ON DAYS 2 AND 8 OF CYCLES 2 AND 4 (APPROXIMATE))
     Route: 042
     Dates: end: 20210824
  4. METHOTREXATE SODIUM [Suspect]
     Active Substance: METHOTREXATE SODIUM
     Indication: Product used for unknown indication
     Dosage: 50 MG/M2 CYCLIC (REGIMEN B: OVER 2HRS ON DAY 1)
     Route: 042
  5. METHOTREXATE SODIUM [Suspect]
     Active Substance: METHOTREXATE SODIUM
     Dosage: 200 MG/M2 CYCLIC (REGIMEN B: CONTINUOUS INFUSION OVER 22 HOURS ON DAY 1)
     Route: 042
  6. RITUXIMAB [Suspect]
     Active Substance: RITUXIMAB
     Indication: Product used for unknown indication
     Dosage: 375 MG/M2 CYCLIC (REGIMEN A: ON DAY 2 AND DAY 8 OF CYCLES 1 AND 3)
     Route: 042
  7. RITUXIMAB [Suspect]
     Active Substance: RITUXIMAB
     Dosage: 375 MG/M2 CYCLIC (REGIMEN B: ON DAY 2 AND 8 OF CYCLES 2 AND 4)
     Route: 042
  8. VINCRISTINE SULFATE [Suspect]
     Active Substance: VINCRISTINE SULFATE
     Indication: Product used for unknown indication
     Dosage: 2 MG CYCLIC (REGIMEN A: DAY 1 AND DAY 8 (APPROXIMATE))
     Route: 042
  9. CYTARABINE [Suspect]
     Active Substance: CYTARABINE
     Indication: Product used for unknown indication
     Dosage: 500 MG/M2 CYCLIC (REGIMEN B: OVER 3 HOURS TWICE A DAY X 4 DOSES ON DAYS 2 AND 3)
     Route: 042
  10. PEGFILGRASTIM [Suspect]
     Active Substance: PEGFILGRASTIM
     Indication: Product used for unknown indication
     Dosage: 6 MG CYCLIC (REGIMEN A: (OR FILGRASTIM 5-10 MCG/KG DAILY) ON DAY 4 UNTIL RECOVERY OF GRANULOCYTE COU
     Route: 058
  11. PEGFILGRASTIM [Suspect]
     Active Substance: PEGFILGRASTIM
     Dosage: 6 MG CYCLIC (REGIMEN B: (OR FILGRASTIM 5-10 MCG/KG DAILY) ON DAY 4 UNTIL RECOVERY OF GRANULOCYTE COU
     Route: 058
  12. CYCLOPHOSPHAMIDE [Suspect]
     Active Substance: CYCLOPHOSPHAMIDE
     Indication: Product used for unknown indication
     Dosage: 150 MG/M2 CYCLIC (REGIMEN A: OVER 3 HOURS TWICE A DAY ON DAYS 1-3)
     Route: 042
  13. DEXAMETHASONE [Suspect]
     Active Substance: DEXAMETHASONE
     Indication: Product used for unknown indication
     Dosage: 20 MG CYCLIC (REGIMEN A: DAILY FOR 4 DAYS ON DAYS 1-4 AND DAYS 11-14 (APPROXIMATE))
     Route: 042
  14. BLINATUMOMAB [Suspect]
     Active Substance: BLINATUMOMAB
     Indication: Product used for unknown indication
     Dosage: 9 UG CYCLIC (REGIMEN C: 9 UG/DAY CONTINUOUS INFUSION DAYS 1-4 (CYCLE 5 ONLY))
  15. BLINATUMOMAB [Suspect]
     Active Substance: BLINATUMOMAB
     Dosage: 28 UG CYCLIC (REGIMEN C: 28UG/DAY CONTINUOUS INFUSION DAYS 4-29 (CYCLE 5 ONLY))
  16. BLINATUMOMAB [Suspect]
     Active Substance: BLINATUMOMAB
     Dosage: 28 UG CYCLIC (REGIMEN C: 28UG/DAY CONTINUOUS INFUSION DAYS 1-29 (CYCLES 6, 11 AND 12)) REGIMEN: C; C

REACTIONS (1)
  - Mental status changes [Recovered/Resolved]

NARRATIVE: CASE EVENT DATE: 20211029
